FAERS Safety Report 7613575-6 (Version None)
Quarter: 2011Q3

REPORT INFORMATION
  Report Type: 
  Country: None (occurrence: None)
  Receive Date: 20110708
  Receipt Date: 20110627
  Transmission Date: 20111222
  Serious: Yes (Hospitalization)
  Sender: FDA-Public Use
  Company Number: WAES 1106USA03866

PATIENT
  Age: 64 Year
  Sex: Male
  Weight: 55.7924 kg

DRUGS (3)
  1. LOSARTAN POTASSIUM AND HYDROCHLOROTHIAZIDE [Suspect]
     Indication: ESSENTIAL HYPERTENSION
     Dosage: 50/12.5/DAILY/PO
     Route: 048
     Dates: start: 20110525, end: 20110620
  2. LIPITOR [Suspect]
  3. PLACEBO [Suspect]
     Dosage: 1 TAB/DAILY/PO
     Route: 048
     Dates: start: 20110525, end: 20110620

REACTIONS (1)
  - CEREBRAL HAEMORRHAGE [None]
